FAERS Safety Report 9064782 (Version 3)
Quarter: 2013Q2

REPORT INFORMATION
  Report Type: Spontaneous
  Country: BE (occurrence: BE)
  Receive Date: 20130214
  Receipt Date: 20130627
  Transmission Date: 20140414
  Serious: Yes (Hospitalization)
  Sender: FDA-Public Use
  Company Number: BE-009507513-1302BEL004019

PATIENT
  Sex: Male
  Weight: 80 kg

DRUGS (5)
  1. BOCEPREVIR [Suspect]
     Indication: HEPATITIS C
     Dosage: UNK
     Route: 048
     Dates: start: 20120811, end: 20120813
  2. RIBAVIRIN [Suspect]
     Indication: HEPATITIS C
     Dosage: UNK
     Route: 048
     Dates: start: 20120712
  3. PEGASYS [Suspect]
     Indication: HEPATITIS C
     Dosage: UNK
     Dates: start: 20120712
  4. CERTICAN [Concomitant]
  5. CELLCEPT [Concomitant]

REACTIONS (2)
  - Thrombocytopenia [Recovered/Resolved]
  - Anaemia [Recovered/Resolved]
